FAERS Safety Report 6850357-7 (Version None)
Quarter: 2010Q3

REPORT INFORMATION
  Report Type: 
  Country: None (occurrence: None)
  Receive Date: 20100716
  Receipt Date: 20071016
  Transmission Date: 20110219
  Serious: No
  Sender: FDA-Public Use
  Company Number: US-PFIZER INC-2007088317

PATIENT
  Sex: Female
  Weight: 61.4 kg

DRUGS (3)
  1. CHANTIX [Suspect]
     Indication: ALCOHOL USE
     Dates: start: 20070801
  2. ANTIHYPERTENSIVES [Concomitant]
     Indication: HYPERTENSION
  3. LEXAPRO [Concomitant]

REACTIONS (2)
  - ABSTAINS FROM ALCOHOL [None]
  - WEIGHT DECREASED [None]
